FAERS Safety Report 21416851 (Version 1)
Quarter: 2022Q4

REPORT INFORMATION
  Report Type: Spontaneous
  Country: US (occurrence: US)
  Receive Date: 20221006
  Receipt Date: 20221006
  Transmission Date: 20230113
  Serious: No
  Sender: FDA-Public Use
  Company Number: US-ALLERGAN-2229772US

PATIENT
  Age: 62 Year
  Sex: Male

DRUGS (2)
  1. VRAYLAR [Suspect]
     Active Substance: CARIPRAZINE
     Indication: Bipolar I disorder
     Dosage: 1.5 MG, QD
     Route: 048
  2. VRAYLAR [Suspect]
     Active Substance: CARIPRAZINE
     Dosage: 3 MG, QD
     Route: 048

REACTIONS (2)
  - Extrapyramidal disorder [Recovering/Resolving]
  - Akathisia [Recovering/Resolving]
